FAERS Safety Report 4867753-X (Version None)
Quarter: 2005Q4

REPORT INFORMATION
  Report Type: 
  Country: None (occurrence: None)
  Receive Date: 20051222
  Receipt Date: 20051222
  Transmission Date: 20060501
  Serious: Yes (Life-Threatening, Hospitalization)
  Sender: FDA-Public Use
  Company Number: None

PATIENT
  Age: 77 Year
  Sex: Male
  Weight: 79.3795 kg

DRUGS (1)
  1. PLAVIX [Suspect]
     Indication: ANGIOPLASTY
     Dosage: 1 TABLET (75 MG) ONCE DAILY ORAL
     Route: 048
     Dates: start: 20041127, end: 20050103

REACTIONS (1)
  - RECTAL HAEMORRHAGE [None]
